FAERS Safety Report 7327791-4 (Version None)
Quarter: 2011Q1

REPORT INFORMATION
  Report Type: 
  Country: None (occurrence: None)
  Receive Date: 20110303
  Receipt Date: 20110228
  Transmission Date: 20110831
  Serious: No
  Sender: FDA-Public Use
  Company Number: US-PFIZER INC-2011023399

PATIENT
  Age: 82 Year
  Sex: Female
  Weight: 57 kg

DRUGS (3)
  1. ADVIL LIQUI-GELS [Suspect]
     Indication: SCIATIC NERVE INJURY
     Dosage: UNK
     Route: 048
     Dates: start: 20110124, end: 20110131
  2. FOSAMAX [Concomitant]
     Indication: BLOOD CHOLESTEROL ABNORMAL
     Dosage: 70 MG, WEEKLY
     Route: 048
  3. LIPITOR [Concomitant]
     Dosage: 10 MG, 1X/DAY
     Route: 048

REACTIONS (1)
  - OEDEMA PERIPHERAL [None]
